FAERS Safety Report 23486930 (Version 1)
Quarter: 2024Q1

REPORT INFORMATION
  Report Type: Spontaneous
  Country: CN (occurrence: CN)
  Receive Date: 20240206
  Receipt Date: 20240206
  Transmission Date: 20240409
  Serious: Yes (Other)
  Sender: FDA-Public Use
  Company Number: CN-BAYER-2024A019688

PATIENT
  Age: 64 Year
  Sex: Male

DRUGS (3)
  1. ULTRAVIST [Suspect]
     Active Substance: IOPROMIDE
     Indication: Angiocardiogram
     Dosage: 120 ML, ONCE
     Route: 013
     Dates: start: 20231219, end: 20231219
  2. ULTRAVIST [Suspect]
     Active Substance: IOPROMIDE
     Indication: Percutaneous coronary intervention
  3. ULTRAVIST [Suspect]
     Active Substance: IOPROMIDE
     Indication: Coronary angioplasty

REACTIONS (1)
  - Nephropathy toxic [Recovering/Resolving]

NARRATIVE: CASE EVENT DATE: 20231219
